FAERS Safety Report 25246361 (Version 1)
Quarter: 2025Q2

REPORT INFORMATION
  Report Type: Spontaneous
  Country: US (occurrence: None)
  Receive Date: 20250425
  Receipt Date: 20250425
  Transmission Date: 20250716
  Serious: Yes (Hospitalization, Disabling)
  Sender: FDA-CTU
  Company Number: None

PATIENT
  Age: 40 Year
  Sex: Female
  Weight: 83.01 kg

DRUGS (3)
  1. ZOSYN [Suspect]
     Active Substance: PIPERACILLIN SODIUM\TAZOBACTAM SODIUM
     Indication: Urinary tract infection
     Dates: start: 20250327, end: 20250327
  2. Fluoxetine 10mg q d [Concomitant]
     Dosage: FREQUENCY : DAILY;?
  3. HERBAL NOS [Concomitant]
     Active Substance: HERBALS

REACTIONS (9)
  - Contraindicated product administered [None]
  - Tremor [None]
  - Feeling abnormal [None]
  - Psychotic disorder [None]
  - Hallucination [None]
  - Delusion [None]
  - Dyskinesia [None]
  - Dystonia [None]
  - Impaired work ability [None]

NARRATIVE: CASE EVENT DATE: 20250327
